FAERS Safety Report 26050995 (Version 1)
Quarter: 2025Q4

REPORT INFORMATION
  Report Type: Spontaneous
  Country: US (occurrence: US)
  Receive Date: 20251117
  Receipt Date: 20251117
  Transmission Date: 20260117
  Serious: No
  Sender: STRIDES
  Company Number: US-STRIDES ARCOLAB LIMITED-2025SP005506

PATIENT
  Age: 69 Year
  Sex: Female

DRUGS (2)
  1. TOPIRAMATE [Suspect]
     Active Substance: TOPIRAMATE
     Indication: Migraine
     Dosage: 75 MILLIGRAM
     Route: 065
  2. TOPIRAMATE [Suspect]
     Active Substance: TOPIRAMATE
     Dosage: 25 MILLIGRAM, TAPERED DOSE
     Route: 065

REACTIONS (5)
  - Sensory processing disorder [Unknown]
  - Alopecia [Unknown]
  - Anxiety [Unknown]
  - Drug ineffective [Unknown]
  - Treatment noncompliance [Unknown]
